FAERS Safety Report 9367589 (Version 2)
Quarter: 2013Q3

REPORT INFORMATION
  Report Type: Spontaneous
  Country: US (occurrence: US)
  Receive Date: 20130625
  Receipt Date: 20130828
  Transmission Date: 20140515
  Serious: Yes (Death)
  Sender: FDA-Public Use
  Company Number: US-GENZYME-POMP-1003086

PATIENT
  Age: 76 Year
  Sex: Female

DRUGS (3)
  1. LUMIZYME [Suspect]
     Indication: GLYCOGEN STORAGE DISEASE TYPE II
     Dosage: 1350 MG, Q2W
     Route: 042
     Dates: start: 20110302, end: 20130503
  2. TRAMADOL [Concomitant]
     Indication: BACK PAIN
     Dosage: 50 MG, PRN
     Route: 065
     Dates: start: 201302
  3. VITAMIN B12 [Concomitant]
     Indication: PRODUCT USED FOR UNKNOWN INDICATION
     Dosage: UNK
     Route: 065

REACTIONS (2)
  - Hypoxic-ischaemic encephalopathy [Fatal]
  - Cardio-respiratory arrest [Fatal]
